FAERS Safety Report 24976858 (Version 1)
Quarter: 2025Q1

REPORT INFORMATION
  Report Type: Other
  Country: CA (occurrence: CA)
  Receive Date: 20250217
  Receipt Date: 20250217
  Transmission Date: 20250408
  Serious: Yes (Life-Threatening, Hospitalization, Other)
  Sender: APOTEX
  Company Number: CA-APOTEX-2025AP002136

PATIENT
  Sex: Male

DRUGS (47)
  1. DICLOFENAC [Suspect]
     Active Substance: DICLOFENAC
     Indication: Pain
     Route: 065
  2. DICLOFENAC [Suspect]
     Active Substance: DICLOFENAC
     Indication: Neuralgia
  3. DICLOFENAC [Suspect]
     Active Substance: DICLOFENAC
     Indication: Guillain-Barre syndrome
  4. ACETAMINOPHEN [Suspect]
     Active Substance: ACETAMINOPHEN
     Indication: Pain
     Route: 065
  5. ACETAMINOPHEN [Suspect]
     Active Substance: ACETAMINOPHEN
     Indication: Neuralgia
     Dosage: 2600 MILLIGRAM, QD
     Route: 065
  6. ACETAMINOPHEN [Suspect]
     Active Substance: ACETAMINOPHEN
     Indication: Guillain-Barre syndrome
     Dosage: 3900 MILLIGRAM, QD
     Route: 065
  7. GABAPENTIN [Suspect]
     Active Substance: GABAPENTIN
     Indication: Neuralgia
     Dosage: 1200 MILLIGRAM, QD
     Route: 048
  8. GABAPENTIN [Suspect]
     Active Substance: GABAPENTIN
     Indication: Guillain-Barre syndrome
     Dosage: 1800 MILLIGRAM, QD
     Route: 048
  9. GABAPENTIN [Suspect]
     Active Substance: GABAPENTIN
     Indication: Acute respiratory failure
     Dosage: 3600 MILLIGRAM, QD
     Route: 048
  10. GABAPENTIN [Suspect]
     Active Substance: GABAPENTIN
     Dosage: 900 MILLIGRAM, QD
     Route: 065
  11. GABAPENTIN [Suspect]
     Active Substance: GABAPENTIN
     Dosage: 300 MILLIGRAM, QD
     Route: 065
  12. GABAPENTIN [Suspect]
     Active Substance: GABAPENTIN
     Route: 065
  13. ZOPICLONE [Suspect]
     Active Substance: ZOPICLONE
     Indication: Neuralgia
     Route: 065
  14. ZOPICLONE [Suspect]
     Active Substance: ZOPICLONE
     Indication: Guillain-Barre syndrome
     Route: 065
  15. HYDROMORPHONE [Suspect]
     Active Substance: HYDROMORPHONE
     Indication: Neuralgia
     Route: 048
  16. HYDROMORPHONE [Suspect]
     Active Substance: HYDROMORPHONE
     Indication: Guillain-Barre syndrome
     Dosage: 7 MILLIGRAM, QD
     Route: 065
  17. OLANZAPINE [Suspect]
     Active Substance: OLANZAPINE
     Indication: Neuralgia
     Dosage: 2.5 MILLIGRAM, QD
     Route: 065
  18. OLANZAPINE [Suspect]
     Active Substance: OLANZAPINE
     Indication: Guillain-Barre syndrome
     Dosage: 3 MILLIGRAM, QD
     Route: 065
  19. IBUPROFEN [Suspect]
     Active Substance: IBUPROFEN
     Indication: Neuralgia
     Dosage: 1600 MILLIGRAM, QD
     Route: 065
  20. IBUPROFEN [Suspect]
     Active Substance: IBUPROFEN
     Indication: Guillain-Barre syndrome
     Route: 065
  21. IBUPROFEN [Suspect]
     Active Substance: IBUPROFEN
     Indication: Acute respiratory failure
  22. VENLAFAXINE HYDROCHLORIDE [Suspect]
     Active Substance: VENLAFAXINE HYDROCHLORIDE
     Indication: Neuralgia
     Route: 065
  23. VENLAFAXINE HYDROCHLORIDE [Suspect]
     Active Substance: VENLAFAXINE HYDROCHLORIDE
     Indication: Guillain-Barre syndrome
     Route: 065
  24. NABILONE [Suspect]
     Active Substance: NABILONE
     Indication: Pain
     Dosage: 2 MILLIGRAM, QD
     Route: 065
  25. NABILONE [Suspect]
     Active Substance: NABILONE
     Indication: Neuralgia
     Dosage: 6 MILLIGRAM, QD
     Route: 065
  26. NABILONE [Suspect]
     Active Substance: NABILONE
     Indication: Guillain-Barre syndrome
  27. PHENYTOIN [Suspect]
     Active Substance: PHENYTOIN
     Indication: Neuralgia
     Dosage: 1500 MILLIGRAM, QD
     Route: 065
  28. DILAUDID [Suspect]
     Active Substance: HYDROMORPHONE HYDROCHLORIDE
     Indication: Neuralgia
     Dosage: 30 MILLIGRAM, QD
     Route: 065
  29. DILAUDID [Suspect]
     Active Substance: HYDROMORPHONE HYDROCHLORIDE
     Indication: Pain
     Dosage: 7 MILLIGRAM, QD
     Route: 065
  30. DILAUDID [Suspect]
     Active Substance: HYDROMORPHONE HYDROCHLORIDE
     Indication: Guillain-Barre syndrome
     Route: 065
  31. FENTANYL [Suspect]
     Active Substance: FENTANYL
     Indication: Neuralgia
     Dosage: 25 MILLIGRAM, Q.H.
     Route: 065
  32. FENTANYL [Suspect]
     Active Substance: FENTANYL
     Indication: Pain
     Dosage: 37.5 MILLIGRAM, Q.H.
     Route: 065
  33. FENTANYL [Suspect]
     Active Substance: FENTANYL
     Indication: Guillain-Barre syndrome
     Route: 065
  34. HYDROMORPHONE [Suspect]
     Active Substance: HYDROMORPHONE
     Indication: Neuralgia
     Route: 041
  35. HYDROMORPHONE [Suspect]
     Active Substance: HYDROMORPHONE
     Indication: Guillain-Barre syndrome
  36. HUMAN IMMUNOGLOBULIN G [Suspect]
     Active Substance: HUMAN IMMUNOGLOBULIN G
     Indication: Guillain-Barre syndrome
     Route: 065
  37. KETAMINE [Suspect]
     Active Substance: KETAMINE
     Indication: Neuralgia
     Dosage: 40 MILLIGRAM, QD
     Route: 065
  38. KETAMINE [Suspect]
     Active Substance: KETAMINE
     Indication: Guillain-Barre syndrome
     Dosage: 30 MILLIGRAM, QD
     Route: 042
  39. LIDOCAINE [Suspect]
     Active Substance: LIDOCAINE
     Indication: Pain
     Dosage: 3.84 MILLIGRAM, Q.H.
     Route: 065
  40. LIDOCAINE [Suspect]
     Active Substance: LIDOCAINE
     Indication: Neuralgia
     Route: 065
  41. LIDOCAINE [Suspect]
     Active Substance: LIDOCAINE
     Indication: Guillain-Barre syndrome
  42. NABILONE [Suspect]
     Active Substance: NABILONE
     Indication: Pain
     Route: 042
  43. NABILONE [Suspect]
     Active Substance: NABILONE
     Indication: Neuralgia
  44. NABILONE [Suspect]
     Active Substance: NABILONE
     Indication: Guillain-Barre syndrome
  45. BUPIVACAINE [Concomitant]
     Active Substance: BUPIVACAINE
     Indication: Neuralgia
     Route: 065
  46. MORPHINE [Concomitant]
     Active Substance: MORPHINE
     Indication: Neuralgia
     Route: 065
  47. NORTRIPTYLINE [Concomitant]
     Active Substance: NORTRIPTYLINE
     Indication: Neuralgia
     Route: 065

REACTIONS (2)
  - Inspiratory capacity decreased [Unknown]
  - Off label use [Unknown]
